FAERS Safety Report 4669544-1 (Version None)
Quarter: 2005Q2

REPORT INFORMATION
  Report Type: 
  Country: None (occurrence: None)
  Receive Date: 20050523
  Receipt Date: 20050518
  Transmission Date: 20051028
  Serious: Yes (Life-Threatening, Hospitalization)
  Sender: FDA-Public Use
  Company Number: PHBS2005NL06968

PATIENT
  Age: 70 Year
  Sex: Female

DRUGS (5)
  1. CO-DIOVAN [Suspect]
     Route: 048
  2. CITALOPRAM [Suspect]
     Indication: ANXIETY
  3. METOPROLOL [Concomitant]
  4. GLIMEPIRIDE [Concomitant]
  5. PHYTOTHERAPEUTIC DRUG [Concomitant]

REACTIONS (2)
  - DRUG INTERACTION [None]
  - HYPONATRAEMIA [None]
